FAERS Safety Report 10263432 (Version 1)
Quarter: 2014Q2

REPORT INFORMATION
  Report Type: Report from Study
  Country: FR (occurrence: FR)
  Receive Date: 20140626
  Receipt Date: 20140626
  Transmission Date: 20141212
  Serious: Yes (Other)
  Sender: FDA-Public Use
  Company Number: FR-MYLANLABS-2014S1014435

PATIENT
  Age: 56 Year
  Sex: Male

DRUGS (2)
  1. MITOXANTRONE [Suspect]
     Indication: ACUTE MYELOID LEUKAEMIA
     Dosage: DOSE UNIT:2 MILLIGRAMS PER MILLILITRE*
     Route: 042
     Dates: start: 20080604, end: 20080605
  2. CYTARABINE [Suspect]
     Indication: ACUTE MYELOID LEUKAEMIA
     Route: 042
     Dates: start: 20080604, end: 20080608

REACTIONS (1)
  - Febrile bone marrow aplasia [Recovered/Resolved]
